FAERS Safety Report 22057739 (Version 1)
Quarter: 2023Q1

REPORT INFORMATION
  Report Type: Spontaneous
  Country: FR (occurrence: FR)
  Receive Date: 20230303
  Receipt Date: 20230303
  Transmission Date: 20230417
  Serious: Yes (Hospitalization)
  Sender: FDA-Public Use
  Company Number: None

PATIENT
  Age: 76 Year
  Sex: Female
  Weight: 46 kg

DRUGS (4)
  1. BISOPROLOL FUMARATE [Suspect]
     Active Substance: BISOPROLOL FUMARATE
     Indication: Atrial fibrillation
     Route: 065
     Dates: start: 20221221
  2. FLECAINIDE [Suspect]
     Active Substance: FLECAINIDE
     Indication: Arrhythmia supraventricular
     Route: 065
     Dates: start: 20221219, end: 20230103
  3. ELIQUIS [Suspect]
     Active Substance: APIXABAN
     Indication: Atrial fibrillation
     Route: 065
     Dates: start: 20221219, end: 20230103
  4. ASPIRIN DL-LYSINE [Suspect]
     Active Substance: ASPIRIN DL-LYSINE
     Indication: Atrial fibrillation
     Route: 065
     Dates: start: 20221215, end: 20230103

REACTIONS (3)
  - Dysarthria [Recovered/Resolved]
  - Hypoaesthesia [Recovered/Resolved]
  - Hepatocellular injury [Recovered/Resolved]

NARRATIVE: CASE EVENT DATE: 20230103
